FAERS Safety Report 8389059 (Version 5)
Quarter: 2013Q1

REPORT INFORMATION
  Report Type: Report from Study
  Country: GR (occurrence: GR)
  Receive Date: 20120203
  Receipt Date: 20130110
  Transmission Date: 20140127
  Serious: Yes (Hospitalization)
  Sender: FDA-Public Use
  Company Number: GR-CELGENEUS-066-C5013-12011981

PATIENT
  Age: 80 Year
  Sex: Female
  Weight: 63 kg

DRUGS (15)
  1. THALIDOMIDE [Suspect]
     Indication: PLASMA CELL MYELOMA
     Dosage: 100 MILLIGRAM
     Route: 048
     Dates: start: 20101206
  2. THALIDOMIDE [Suspect]
     Dosage: 25 MILLIGRAM
     Route: 048
     Dates: start: 20120105, end: 20120110
  3. MELPHALAN [Suspect]
     Indication: PLASMA CELL MYELOMA
     Dosage: 6 MILLIGRAM
     Route: 048
     Dates: start: 20101206
  4. MELPHALAN [Suspect]
     Dosage: 6 MILLIGRAM
     Route: 048
     Dates: start: 20120105, end: 20120108
  5. PREDNISONE [Suspect]
     Indication: PLASMA CELL MYELOMA
     Dosage: 105 MILLIGRAM
     Route: 048
     Dates: start: 20101206
  6. PREDNISONE [Suspect]
     Dosage: 120 MILLIGRAM
     Route: 048
     Dates: start: 20120105, end: 20120108
  7. VALACICLOVIR [Concomitant]
     Indication: PROPHYLAXIS
     Dosage: 500 MILLIGRAM
     Route: 048
     Dates: start: 20101126
  8. ALLOPURINOL [Concomitant]
     Indication: HYPERURICAEMIA
     Dosage: 100 MILLIGRAM
     Route: 048
     Dates: start: 20101126
  9. RABEPRAZOLE [Concomitant]
     Indication: GASTRITIS PROPHYLAXIS
     Dosage: 20 MILLIGRAM
     Route: 048
     Dates: start: 20101126
  10. TIOTROPIUM [Concomitant]
     Indication: CHRONIC OBSTRUCTIVE PULMONARY DISEASE
     Dosage: 18 MILLIGRAM
     Route: 048
     Dates: start: 2006
  11. FLUTICASONE [Concomitant]
     Indication: GOITRE
     Dosage: 125 MICROGRAM
     Route: 055
     Dates: start: 2006
  12. ACETYLSALICYLIC ACID [Concomitant]
     Indication: THROMBOSIS PROPHYLAXIS
     Dosage: 100 MILLIGRAM
     Route: 048
     Dates: start: 20101229
  13. SULFAMETHOXAZOLE [Concomitant]
     Indication: PROPHYLAXIS
     Dosage: 800/160MG
     Route: 048
     Dates: start: 20101126
  14. LACTULOSE [Concomitant]
     Indication: CONSTIPATION
     Dosage: 30 MILLILITER
     Route: 048
     Dates: start: 20101222
  15. HNMTHIPRIM [Concomitant]
     Indication: PROPHYLAXIS
     Route: 048
     Dates: start: 20101126

REACTIONS (1)
  - Breast cancer in situ [Recovered/Resolved]
